FAERS Safety Report 7943699-5 (Version None)
Quarter: 2011Q4

REPORT INFORMATION
  Report Type: 
  Country: None (occurrence: None)
  Receive Date: 20111128
  Receipt Date: 20111125
  Transmission Date: 20120403
  Serious: Yes (Death)
  Sender: FDA-Public Use
  Company Number: CA-ABBOTT-11P-028-0877089-00

PATIENT
  Sex: Male
  Weight: 69.916 kg

DRUGS (1)
  1. LUPRON DEPOT [Suspect]
     Indication: PROSTATE CANCER
     Dosage: 3 MONTHS DEPOT
     Route: 030

REACTIONS (1)
  - PROSTATE CANCER METASTATIC [None]
